FAERS Safety Report 7343555-X (Version None)
Quarter: 2011Q1

REPORT INFORMATION
  Report Type: 
  Country: None (occurrence: None)
  Receive Date: 20110310
  Receipt Date: 20100512
  Transmission Date: 20110831
  Serious: No
  Sender: FDA-Public Use
  Company Number: A0859337A

PATIENT
  Age: 55 Year
  Sex: Male

DRUGS (1)
  1. NICORETTE [Suspect]

REACTIONS (8)
  - INFECTION [None]
  - DRUG ADMINISTRATION ERROR [None]
  - WHEEZING [None]
  - BRONCHITIS [None]
  - MUCOSAL DISCOLOURATION [None]
  - SINUSITIS [None]
  - SPUTUM DISCOLOURED [None]
  - CONDITION AGGRAVATED [None]
